FAERS Safety Report 23244851 (Version 1)
Quarter: 2023Q4

REPORT INFORMATION
  Report Type: Spontaneous
  Country: None (occurrence: US)
  Receive Date: 20231130
  Receipt Date: 20231130
  Transmission Date: 20240109
  Serious: No
  Sender: FDA-Public Use
  Company Number: US-Mission Pharmacal Company-2148814

PATIENT
  Age: 54 Year
  Sex: Female

DRUGS (2)
  1. POTASSIUM CITRATE [Suspect]
     Active Substance: POTASSIUM CITRATE
     Indication: Product used for unknown indication
     Route: 048
  2. THIOLA EC [Concomitant]
     Active Substance: TIOPRONIN
     Route: 048
     Dates: start: 20231020

REACTIONS (1)
  - Paraesthesia [Unknown]
